FAERS Safety Report 21017237 (Version 1)
Quarter: 2022Q2

REPORT INFORMATION
  Report Type: Spontaneous
  Country: US (occurrence: US)
  Receive Date: 20220628
  Receipt Date: 20220628
  Transmission Date: 20220721
  Serious: Yes (Other)
  Sender: FDA-Public Use
  Company Number: US-UPSHER-SMITH LABORATORIES, LLC-2022USL00404

PATIENT
  Sex: Female
  Weight: 58.957 kg

DRUGS (2)
  1. ISOTRETINOIN [Suspect]
     Active Substance: ISOTRETINOIN
     Indication: Acne
     Dosage: 30 MG, 2X/DAY
     Route: 048
     Dates: start: 20220302, end: 2022
  2. ISOTRETINOIN [Suspect]
     Active Substance: ISOTRETINOIN
     Dosage: 30 MG, 1X/DAY
     Dates: start: 2022, end: 2022

REACTIONS (3)
  - Social avoidant behaviour [Unknown]
  - Depression [Recovering/Resolving]
  - Contusion [Recovered/Resolved]

NARRATIVE: CASE EVENT DATE: 20220101
